FAERS Safety Report 5498512-5 (Version None)
Quarter: 2007Q4

REPORT INFORMATION
  Report Type: 
  Country: None (occurrence: None)
  Receive Date: 20071025
  Receipt Date: 20071025
  Transmission Date: 20080405
  Serious: Yes (Other)
  Sender: FDA-Public Use
  Company Number: None

PATIENT
  Sex: Male
  Weight: 113.3993 kg

DRUGS (1)
  1. ADVAIR INHALER 500/50 GLAXO/SMITHKLINE [Suspect]
     Indication: ASTHMA
     Dosage: 1 INHALATION TWICE DAILY INHAL
     Route: 055
     Dates: start: 20040901, end: 20071023

REACTIONS (1)
  - RESTLESS LEGS SYNDROME [None]
